FAERS Safety Report 5492816-8 (Version None)
Quarter: 2007Q4

REPORT INFORMATION
  Report Type: 
  Country: None (occurrence: None)
  Receive Date: 20071023
  Receipt Date: 20071012
  Transmission Date: 20080405
  Serious: Yes (Other)
  Sender: FDA-Public Use
  Company Number: US-WYE-H00672707

PATIENT
  Age: 47 Year
  Sex: Female

DRUGS (2)
  1. EFFEXOR XR [Suspect]
     Route: 048
  2. EFFEXOR XR [Suspect]
     Route: 048

REACTIONS (2)
  - LYMPHOEDEMA [None]
  - WEIGHT INCREASED [None]
